FAERS Safety Report 15310690 (Version 1)
Quarter: 2018Q3

REPORT INFORMATION
  Report Type: Spontaneous
  Country: BR (occurrence: BR)
  Receive Date: 20180823
  Receipt Date: 20180823
  Transmission Date: 20181010
  Serious: Yes (Other)
  Sender: FDA-Public Use
  Company Number: BR-GUERBET-BR-20180304

PATIENT
  Age: 40 Year
  Sex: Female
  Weight: 64 kg

DRUGS (1)
  1. DOTAREM [Suspect]
     Active Substance: GADOTERATE MEGLUMINE
     Indication: NUCLEAR MAGNETIC RESONANCE IMAGING ABDOMINAL
     Route: 042
     Dates: start: 20180731, end: 20180731

REACTIONS (10)
  - Pulse abnormal [Recovered/Resolved]
  - Fatigue [Recovered/Resolved]
  - Unresponsive to stimuli [Recovered/Resolved]
  - Pallor [Recovered/Resolved]
  - Throat irritation [Recovered/Resolved]
  - Peripheral coldness [Recovered/Resolved]
  - Cough [Recovered/Resolved]
  - Cyanosis [Recovered/Resolved]
  - Pharyngeal hypoaesthesia [Recovered/Resolved]
  - Dizziness [Recovered/Resolved]

NARRATIVE: CASE EVENT DATE: 20180731
